FAERS Safety Report 11871986 (Version 1)
Quarter: 2015Q4

REPORT INFORMATION
  Report Type: Spontaneous
  Country: PH (occurrence: PH)
  Receive Date: 20151228
  Receipt Date: 20151228
  Transmission Date: 20160305
  Serious: Yes (Hospitalization, Other)
  Sender: FDA-Public Use
  Company Number: PH-009507513-1512PHL009945

PATIENT
  Age: 59 Year
  Sex: Male

DRUGS (1)
  1. COZAAR [Suspect]
     Active Substance: LOSARTAN POTASSIUM
     Indication: HYPERTENSION
     Dosage: ONE TABLET ONCE A DAY
     Route: 048

REACTIONS (1)
  - Arterial bypass operation [Recovered/Resolved]

NARRATIVE: CASE EVENT DATE: 201510
